FAERS Safety Report 15997111 (Version 2)
Quarter: 2019Q1

REPORT INFORMATION
  Report Type: Spontaneous
  Country: US (occurrence: US)
  Receive Date: 20190222
  Receipt Date: 20190328
  Transmission Date: 20190418
  Serious: No
  Sender: FDA-Public Use
  Company Number: US-SA-2019SA042689

PATIENT
  Age: 38 Year
  Sex: Female

DRUGS (1)
  1. ADMELOG [Suspect]
     Active Substance: INSULIN LISPRO
     Indication: TYPE 2 DIABETES MELLITUS
     Dosage: 30 UNITS BREAKFAST AND LUNCH AND 40 UNITS AT DINNER
     Route: 065

REACTIONS (3)
  - Product dose omission [Unknown]
  - Inappropriate schedule of product administration [Unknown]
  - Exposure during pregnancy [Unknown]
